FAERS Safety Report 17641926 (Version 3)
Quarter: 2020Q2

REPORT INFORMATION
  Report Type: Report from Study
  Country: US (occurrence: US)
  Receive Date: 20200407
  Receipt Date: 20200529
  Transmission Date: 20200713
  Serious: Yes (Hospitalization)
  Sender: FDA-Public Use
  Company Number: US-009507513-2004USA002186

PATIENT
  Age: 84 Year
  Sex: Male

DRUGS (14)
  1. REMERON [Suspect]
     Active Substance: MIRTAZAPINE
     Indication: SCIATICA
  2. REMERON [Suspect]
     Active Substance: MIRTAZAPINE
     Indication: ARTHRITIS
  3. REMERON [Suspect]
     Active Substance: MIRTAZAPINE
     Indication: DECREASED APPETITE
  4. COREG [Concomitant]
     Active Substance: CARVEDILOL
     Indication: BLOOD PRESSURE MANAGEMENT
     Dosage: 12.5 MILLIGRAMS, TWICE DAILY
  5. GABAPENTIN. [Suspect]
     Active Substance: GABAPENTIN
     Indication: PAIN
     Dosage: 300 MILLIGRAM, DAILY
     Route: 048
     Dates: end: 20200406
  6. ELIQUIS [Concomitant]
     Active Substance: APIXABAN
     Indication: CEREBRAL THROMBOSIS
     Dosage: 2.5 MILLIGRAM, TWICE A DAY IN THE MORNING AND AT NIGHT
  7. GABAPENTIN. [Suspect]
     Active Substance: GABAPENTIN
     Indication: ARTHRITIS
  8. PEMBROLIZUMAB. [Suspect]
     Active Substance: PEMBROLIZUMAB
     Dosage: UNK
  9. COZAAR [Concomitant]
     Active Substance: LOSARTAN POTASSIUM
     Indication: HYPERTENSION
     Dosage: 25 MILLIGRAM, ONCE DAILY
  10. ATIVAN [Concomitant]
     Active Substance: LORAZEPAM
     Dosage: UNK
     Dates: end: 20200330
  11. REMERON [Suspect]
     Active Substance: MIRTAZAPINE
     Indication: DEPRESSION
     Dosage: 33.3 MG, DAILY
     Route: 048
     Dates: end: 20200330
  12. GABAPENTIN. [Suspect]
     Active Substance: GABAPENTIN
     Indication: SCIATICA
  13. GABAPENTIN. [Suspect]
     Active Substance: GABAPENTIN
     Indication: DECREASED APPETITE
  14. OXYCODONE [Concomitant]
     Active Substance: OXYCODONE
     Dosage: 5 MILLIGRAM, Q8H AS NEEDED
     Dates: start: 202003, end: 20200330

REACTIONS (12)
  - Disorganised speech [Unknown]
  - Disorientation [Unknown]
  - Dysarthria [Not Recovered/Not Resolved]
  - Sleep terror [Unknown]
  - Abnormal behaviour [Unknown]
  - Aggression [Unknown]
  - Urinary tract infection [Unknown]
  - Confusional state [Recovered/Resolved]
  - Speech disorder [Unknown]
  - Sleep talking [Unknown]
  - Belligerence [Unknown]
  - Product use in unapproved indication [Unknown]

NARRATIVE: CASE EVENT DATE: 202003
